FAERS Safety Report 10360852 (Version 2)
Quarter: 2014Q3

REPORT INFORMATION
  Report Type: Spontaneous
  Country: GB (occurrence: None)
  Receive Date: 20140731
  Receipt Date: 20140820
  Transmission Date: 20150326
  Serious: Yes (Hospitalization)
  Sender: FDA-Public Use
  Company Number: 2456806

PATIENT
  Age: 62 Year
  Sex: Male
  Weight: 75.6 kg

DRUGS (6)
  1. GEMCITABINE HYDROCHLORIDE. [Suspect]
     Active Substance: GEMCITABINE HYDROCHLORIDE
     Indication: PANCREATIC CARCINOMA METASTATIC
     Dates: start: 20140526
  2. METOCLOPRAMIDE. [Concomitant]
     Active Substance: METOCLOPRAMIDE
  3. MORPHINE SULPHATE [Concomitant]
     Active Substance: MORPHINE SULFATE
  4. POLOXAMER [Concomitant]
     Active Substance: POLOXAMER
  5. MORPHINE SULPHATE [Concomitant]
     Active Substance: MORPHINE SULFATE
  6. PACLITAXEL ALBUMIN [Suspect]
     Active Substance: PACLITAXEL
     Indication: PANCREATIC CARCINOMA METASTATIC
     Route: 041
     Dates: start: 20140526

REACTIONS (3)
  - Cerebrovascular accident [None]
  - Hypokinesia [None]
  - Pain in extremity [None]

NARRATIVE: CASE EVENT DATE: 20140527
